FAERS Safety Report 21872120 (Version 3)
Quarter: 2023Q1

REPORT INFORMATION
  Report Type: Spontaneous
  Country: JP (occurrence: JP)
  Receive Date: 20230117
  Receipt Date: 20230322
  Transmission Date: 20230418
  Serious: Yes (Death, Other)
  Sender: FDA-Public Use
  Company Number: JP-OTSUKA-2023_001054

PATIENT
  Sex: Male

DRUGS (4)
  1. REXULTI [Suspect]
     Active Substance: BREXPIPRAZOLE
     Indication: Schizophrenia
     Dosage: 2 MG/DAY
     Route: 048
     Dates: end: 20221231
  2. REXULTI [Suspect]
     Active Substance: BREXPIPRAZOLE
     Dosage: 1 MG/DAY
     Route: 048
     Dates: end: 20221202
  3. RISPERIDONE [Concomitant]
     Active Substance: RISPERIDONE
     Indication: Schizophrenia
     Dosage: 1 MG, AS-NEEDED
     Route: 065
  4. BELSOMRA [Concomitant]
     Active Substance: SUVOREXANT
     Indication: Product used for unknown indication
     Dosage: 20 MG/DAY
     Route: 048
     Dates: end: 20221231

REACTIONS (8)
  - Accident [Fatal]
  - Mental impairment [Unknown]
  - Completed suicide [Fatal]
  - Reduced facial expression [Unknown]
  - Tension [Unknown]
  - Restlessness [Unknown]
  - Akathisia [Unknown]
  - Tremor [Unknown]

NARRATIVE: CASE EVENT DATE: 20220101
